FAERS Safety Report 4875471-7 (Version None)
Quarter: 2006Q1

REPORT INFORMATION
  Report Type: 
  Country: None (occurrence: None)
  Receive Date: 20060105
  Receipt Date: 20051223
  Transmission Date: 20060701
  Serious: Yes (Other)
  Sender: FDA-Public Use
  Company Number: 2005147783

PATIENT
  Sex: Female
  Weight: 78.9259 kg

DRUGS (15)
  1. NEURONTIN [Suspect]
     Indication: CONVULSION
     Dosage: 300 MG (100 MG, 3 IN 1 D)
     Dates: end: 20051001
  2. LYRICA [Suspect]
     Indication: CONVULSION
     Dosage: 150 MG(75 MG, 2 IN 1 D), ORAL
     Route: 048
     Dates: start: 20051020
  3. LYRICA [Suspect]
     Indication: NEUROPATHY
     Dosage: 150 MG(75 MG, 2 IN 1 D), ORAL
     Route: 048
     Dates: start: 20051020
  4. ZYRTEC [Concomitant]
  5. PROTONIX (PANTROPRAZOLE) [Concomitant]
  6. MONTELUKAST (MONTELUKAST) [Concomitant]
  7. ALBUTEROL [Concomitant]
  8. HUMULIN 70/30 [Concomitant]
  9. ZOCOR [Concomitant]
  10. PLAVIX [Concomitant]
  11. LEXAPRO [Concomitant]
  12. DEPAKOTE [Concomitant]
  13. COMBIVENT [Concomitant]
  14. MOBIC [Concomitant]
  15. ATIVAN [Concomitant]

REACTIONS (8)
  - BLOOD GLUCOSE INCREASED [None]
  - CONDITION AGGRAVATED [None]
  - CONVULSION [None]
  - GLYCOSYLATED HAEMOGLOBIN INCREASED [None]
  - HYPOGLYCAEMIA [None]
  - MYOCARDIAL INFARCTION [None]
  - NEUROPATHY [None]
  - PAIN [None]
